FAERS Safety Report 18907403 (Version 5)
Quarter: 2021Q2

REPORT INFORMATION
  Report Type: Spontaneous
  Country: US (occurrence: US)
  Receive Date: 20210217
  Receipt Date: 20210512
  Transmission Date: 20210717
  Serious: Yes (Other)
  Sender: FDA-Public Use
  Company Number: US-CELGENEUS-USA-20210202198

PATIENT
  Sex: Female

DRUGS (2)
  1. POMALYST [Suspect]
     Active Substance: POMALIDOMIDE
     Indication: PLASMA CELL MYELOMA
     Dosage: 2 MILLIGRAM
     Route: 048
     Dates: start: 20200408
  2. POMALYST [Suspect]
     Active Substance: POMALIDOMIDE
     Dosage: 2 MILLIGRAM
     Route: 048
     Dates: start: 202007

REACTIONS (9)
  - Blood electrolytes decreased [Recovered/Resolved]
  - Cholelithiasis [Recovered/Resolved]
  - Swollen tongue [Recovered/Resolved]
  - Inflammation [Recovered/Resolved]
  - Muscle spasms [Recovered/Resolved]
  - Diverticulitis [Recovered/Resolved]
  - Amnesia [Recovered/Resolved]
  - Glossodynia [Unknown]
  - Product dose omission in error [Unknown]

NARRATIVE: CASE EVENT DATE: 2020
